FAERS Safety Report 20598463 (Version 2)
Quarter: 2022Q1

REPORT INFORMATION
  Report Type: Spontaneous
  Country: US (occurrence: None)
  Receive Date: 20220315
  Receipt Date: 20220315
  Transmission Date: 20220424
  Serious: No
  Sender: FDA-Public Use
  Company Number: US-ROCHE-2893791

PATIENT
  Age: 43 Year
  Sex: Female

DRUGS (4)
  1. XOLAIR [Suspect]
     Active Substance: OMALIZUMAB
     Indication: Idiopathic urticaria
     Dosage: 150MG/ML
     Route: 058
     Dates: start: 20210728
  2. XOLAIR [Suspect]
     Active Substance: OMALIZUMAB
  3. XOLAIR [Suspect]
     Active Substance: OMALIZUMAB
  4. ALEVE [Concomitant]
     Active Substance: NAPROXEN SODIUM
     Dates: start: 20210810, end: 20210810

REACTIONS (2)
  - Fatigue [Unknown]
  - Urticaria [Unknown]

NARRATIVE: CASE EVENT DATE: 20210817
